FAERS Safety Report 10398905 (Version 1)
Quarter: 2014Q3

REPORT INFORMATION
  Report Type: Report from Study
  Country: US (occurrence: US)
  Receive Date: 20140821
  Receipt Date: 20140821
  Transmission Date: 20150326
  Serious: Yes (Other)
  Sender: FDA-Public Use
  Company Number: US-ABBVIE-14P-163-1272120-00

PATIENT
  Sex: Male

DRUGS (3)
  1. VITAMIN D [Concomitant]
     Active Substance: CHOLECALCIFEROL
     Indication: VITAMIN D DECREASED
     Route: 048
  2. HUMIRA [Suspect]
     Active Substance: ADALIMUMAB
     Indication: CROHN^S DISEASE
     Dates: start: 201311
  3. HUMIRA [Suspect]
     Active Substance: ADALIMUMAB

REACTIONS (8)
  - Drug effect decreased [Unknown]
  - Abdominal pain [Unknown]
  - Immune thrombocytopenic purpura [Not Recovered/Not Resolved]
  - Chest pain [Unknown]
  - Nasal congestion [Unknown]
  - Inflammatory marker increased [Unknown]
  - Influenza [Unknown]
  - Respiratory tract congestion [Unknown]

NARRATIVE: CASE EVENT DATE: 2014
